FAERS Safety Report 7564863-3 (Version None)
Quarter: 2011Q2

REPORT INFORMATION
  Report Type: 
  Country: None (occurrence: None)
  Receive Date: 20110622
  Receipt Date: 20110127
  Transmission Date: 20111010
  Serious: Yes (Death)
  Sender: FDA-Public Use
  Company Number: US-MYLANLABS-2011S1001065

PATIENT
  Age: 82 Year
  Sex: Male

DRUGS (17)
  1. DITROPAN [Concomitant]
  2. ASPIRIN [Concomitant]
  3. LOSARTAN POTASSIUM [Concomitant]
  4. GABAPENTIN [Concomitant]
  5. SEROQUEL [Concomitant]
  6. CLOZAPINE [Suspect]
     Indication: PARKINSON'S DISEASE
     Route: 048
     Dates: start: 20050413, end: 20101207
  7. ARICEPT [Concomitant]
  8. VITAMIN E [Concomitant]
  9. DOXAZOSIN MESYLATE [Concomitant]
  10. SINEMET [Concomitant]
     Dosage: 25/100MG QD
  11. VITAMIN B-12 [Concomitant]
  12. HYDROCHLOROTHIAZIDE [Concomitant]
  13. LEVOTHYROXINE SODIUM [Concomitant]
  14. METOPROLOL SUCCINATE [Concomitant]
  15. COMPAZINE [Concomitant]
  16. BUPROPION HCL [Concomitant]
  17. DEPAKOTE ER [Concomitant]

REACTIONS (1)
  - DEATH [None]
